FAERS Safety Report 8392965-0 (Version None)
Quarter: 2012Q2

REPORT INFORMATION
  Report Type: 
  Country: None (occurrence: None)
  Receive Date: 20120529
  Receipt Date: 20120314
  Transmission Date: 20120825
  Serious: Yes (Death, Hospitalization)
  Sender: FDA-Public Use
  Company Number: DE-INCYTE CORPORATION-2012IN000201

PATIENT
  Sex: Male
  Weight: 70 kg

DRUGS (11)
  1. HYDROXYUREA [Concomitant]
     Dosage: UNK
     Dates: start: 20110314
  2. MEROPENEM [Concomitant]
     Dosage: UNK
  3. INCB018424 [Suspect]
     Indication: MYELOFIBROSIS
     Dosage: 15 MG, UNK
     Route: 048
     Dates: start: 20110818
  4. INCB018424 [Suspect]
     Dosage: 20 MG, UNK
     Route: 048
     Dates: start: 20120112, end: 20120308
  5. INCB018424 [Suspect]
     Dosage: 20 MG, UNK
     Route: 048
     Dates: start: 20110915, end: 20120110
  6. ATACAND [Concomitant]
     Dosage: UNK
  7. NEBIVOLOL HCL [Concomitant]
     Dosage: UNK
  8. ASPIRIN [Concomitant]
     Dosage: UNK
     Dates: start: 20080701
  9. ALLOPURINOL [Concomitant]
     Dosage: UNK
  10. PANTOPRAZOLE [Concomitant]
     Dosage: UNK
  11. CREON [Concomitant]

REACTIONS (3)
  - EXTRAMEDULLARY HAEMOPOIESIS [None]
  - TUBERCULOSIS [None]
  - BRONCHOPULMONARY ASPERGILLOSIS [None]
